FAERS Safety Report 10017516 (Version 1)
Quarter: 2014Q1

REPORT INFORMATION
  Report Type: Spontaneous
  Country: US (occurrence: US)
  Receive Date: 20140318
  Receipt Date: 20140318
  Transmission Date: 20141002
  Serious: No
  Sender: FDA-Public Use
  Company Number: US-BAYER-2014-040044

PATIENT
  Age: 82 Year
  Sex: Male
  Weight: 81.18 kg

DRUGS (3)
  1. ALEVE TABLET [Suspect]
     Indication: ARTHRITIS
     Dosage: 2 DF, ONCE
     Route: 048
     Dates: start: 20140309, end: 20140309
  2. BAYER ASPIRIN REGIMEN ADULT LOW STRENGTH [Concomitant]
  3. HYDROCODONE [Concomitant]
     Dosage: UNK

REACTIONS (1)
  - Dyspepsia [Recovered/Resolved]
